FAERS Safety Report 10238619 (Version 1)
Quarter: 2014Q2

REPORT INFORMATION
  Report Type: Spontaneous
  Country: US (occurrence: US)
  Receive Date: 20140616
  Receipt Date: 20140616
  Transmission Date: 20141212
  Serious: Yes (Hospitalization)
  Sender: FDA-Public Use
  Company Number: US-AMGEN INC.-USASP2014043307

PATIENT
  Age: 73 Year
  Sex: Female

DRUGS (7)
  1. PROLIA [Suspect]
     Indication: OSTEOPOROSIS POSTMENOPAUSAL
     Dosage: UNK UNK, Q6MO
     Route: 065
     Dates: start: 20111228
  2. SYNTHROID [Concomitant]
     Dosage: UNK UNK, AS NECESSARY
  3. OMEPRAZOLE [Concomitant]
     Dosage: UNK UNK, AS NECESSARY
  4. TOPROL [Concomitant]
     Dosage: UNK UNK, AS NECESSARY
  5. CRESTOR [Concomitant]
     Dosage: UNK UNK, AS NECESSARY
  6. TRAMADOL [Concomitant]
     Dosage: UNK UNK, AS NECESSARY
  7. LORAZEPAM [Concomitant]
     Dosage: UNK UNK, AS NECESSARY

REACTIONS (3)
  - Atrioventricular block complete [Unknown]
  - Dizziness [Unknown]
  - Heart rate decreased [Unknown]
